FAERS Safety Report 11874245 (Version 2)
Quarter: 2016Q1

REPORT INFORMATION
  Report Type: Report from Study
  Country: US (occurrence: US)
  Receive Date: 20151229
  Receipt Date: 20160201
  Transmission Date: 20160526
  Serious: No
  Sender: FDA-Public Use
  Company Number: US-AMGEN-USASL2015136859

PATIENT
  Age: 59 Year
  Sex: Female

DRUGS (2)
  1. ENBREL [Suspect]
     Active Substance: ETANERCEPT
     Indication: RHEUMATOID ARTHRITIS
     Dosage: 50 MG, QWK
     Route: 065
     Dates: start: 20150923
  2. ENBREL [Suspect]
     Active Substance: ETANERCEPT
     Dosage: UNK, UNK
     Route: 065

REACTIONS (11)
  - Malaise [Recovered/Resolved]
  - Injection site swelling [Unknown]
  - Pruritus genital [Unknown]
  - Injection site erythema [Unknown]
  - Musculoskeletal stiffness [Unknown]
  - Pain [Unknown]
  - Injection site pruritus [Recovering/Resolving]
  - Respiratory tract congestion [Unknown]
  - Injection site urticaria [Recovering/Resolving]
  - Injection site reaction [Recovering/Resolving]
  - Drug dose omission [Unknown]

NARRATIVE: CASE EVENT DATE: 2015
